FAERS Safety Report 5873281-5 (Version None)
Quarter: 2008Q3

REPORT INFORMATION
  Report Type: 
  Country: None (occurrence: None)
  Receive Date: 20080904
  Receipt Date: 20080815
  Transmission Date: 20090109
  Serious: Yes (Other)
  Sender: FDA-Public Use
  Company Number: ENT 2008-0137

PATIENT
  Sex: Female

DRUGS (3)
  1. COMTAN [Suspect]
     Indication: PARKINSON'S DISEASE
     Dosage: 200MG, 5QD ORAL
     Route: 048
  2. SINEMET [Concomitant]
  3. MIRAPEX [Concomitant]

REACTIONS (5)
  - DRUG INEFFECTIVE [None]
  - GAIT DISTURBANCE [None]
  - HYPOAESTHESIA [None]
  - MOVEMENT DISORDER [None]
  - PHARMACEUTICAL PRODUCT COMPLAINT [None]
